FAERS Safety Report 7731359-5 (Version None)
Quarter: 2011Q3

REPORT INFORMATION
  Report Type: 
  Country: None (occurrence: None)
  Receive Date: 20110906
  Receipt Date: 20110624
  Transmission Date: 20111222
  Serious: No
  Sender: FDA-Public Use
  Company Number: US-AMGEN-USASP2011032524

PATIENT
  Age: 88 Year
  Sex: Female

DRUGS (3)
  1. PROLIA [Suspect]
     Indication: OSTEOPOROSIS POSTMENOPAUSAL
     Dosage: 60 MG, Q6MO
     Dates: start: 20110621
  2. PROLIA [Suspect]
  3. GLYBURIDE [Concomitant]

REACTIONS (4)
  - HYPERHIDROSIS [None]
  - INSOMNIA [None]
  - ADVERSE DRUG REACTION [None]
  - MALAISE [None]
